FAERS Safety Report 5811785-1 (Version None)
Quarter: 2008Q3

REPORT INFORMATION
  Report Type: 
  Country: None (occurrence: None)
  Receive Date: 20080715
  Receipt Date: 20080715
  Transmission Date: 20090109
  Serious: Yes (Hospitalization, Other)
  Sender: FDA-Public Use
  Company Number: None

PATIENT
  Sex: Female
  Weight: 58 kg

DRUGS (1)
  1. LIPOSOMAL DOXORUBICIN [Suspect]
     Indication: OVARIAN CANCER
     Dosage: 40MG/M2 Q28D IV
     Route: 042

REACTIONS (8)
  - EXTRAVASATION [None]
  - INFUSION SITE ERYTHEMA [None]
  - INFUSION SITE EXTRAVASATION [None]
  - INFUSION SITE INDURATION [None]
  - INFUSION SITE PAIN [None]
  - INFUSION SITE REACTION [None]
  - INFUSION SITE ULCER [None]
  - SKIN NECROSIS [None]
